FAERS Safety Report 9383113 (Version 1)
Quarter: 2013Q3

REPORT INFORMATION
  Report Type: Spontaneous
  Country: US (occurrence: US)
  Receive Date: 20130704
  Receipt Date: 20130704
  Transmission Date: 20140515
  Serious: Yes (Hospitalization)
  Sender: FDA-Public Use
  Company Number: CHPA2013US010489

PATIENT
  Age: 67 Year
  Sex: Female

DRUGS (2)
  1. EXCEDRIN EXTRA STRENGTH [Suspect]
     Indication: ARTHRITIS
     Dosage: 2 DF, UNK
     Route: 048
  2. ACETYLSALICYLIC ACID SANDOZ [Suspect]
     Indication: BLOOD PRESSURE MANAGEMENT
     Dosage: 1 DF, UNK
     Route: 048

REACTIONS (2)
  - Haematochezia [Unknown]
  - Drug administration error [Unknown]
